FAERS Safety Report 6334849-5 (Version None)
Quarter: 2009Q3

REPORT INFORMATION
  Report Type: 
  Country: None (occurrence: None)
  Receive Date: 20090831
  Receipt Date: 20090828
  Transmission Date: 20100115
  Serious: Yes (Other)
  Sender: FDA-Public Use
  Company Number: PHHO2006NZ14893

PATIENT
  Sex: Female
  Weight: 83 kg

DRUGS (1)
  1. ZOLEDRONIC ACID [Suspect]
     Indication: PSORIATIC ARTHROPATHY
     Dosage: UNK
     Route: 042
     Dates: start: 20060815, end: 20060815

REACTIONS (4)
  - ARTHRALGIA [None]
  - INFLAMMATION [None]
  - JOINT SWELLING [None]
  - OEDEMA PERIPHERAL [None]
